FAERS Safety Report 9505213 (Version 1)
Quarter: 2013Q1

REPORT INFORMATION
  Report Type: Spontaneous
  Country: US (occurrence: None)
  Receive Date: 20130225
  Receipt Date: 20130225
  Transmission Date: 20140127
  Serious: Yes (Other)
  Sender: FDA-Public Use
  Company Number: 364200

PATIENT
  Age: 77 Year
  Sex: Male
  Weight: 122.4 kg

DRUGS (2)
  1. VICTOZA (LIRAGLUTIDE) SOLUTION FOR INJECTION, 6MG/ML [Suspect]
     Indication: TYPE 2 DIABETES MELLITUS
     Route: 058
     Dates: start: 20120814, end: 20120827
  2. GLUCOPHAGE (METFORMIN HYDROCHLORIDE) [Concomitant]

REACTIONS (2)
  - Angioedema [None]
  - Nausea [None]
